FAERS Safety Report 11627380 (Version 4)
Quarter: 2015Q4

REPORT INFORMATION
  Report Type: Spontaneous
  Country: BR (occurrence: BR)
  Receive Date: 20151013
  Receipt Date: 20151030
  Transmission Date: 20160304
  Serious: Yes (Life-Threatening, Hospitalization, Other)
  Sender: FDA-Public Use
  Company Number: PHHY2015BR123744

PATIENT
  Age: 14 Year
  Sex: Female
  Weight: 56 kg

DRUGS (2)
  1. NEOTIAPIM [Suspect]
     Active Substance: QUETIAPINE
     Indication: PRODUCT USED FOR UNKNOWN INDICATION
     Dosage: (ONE PALETTE OF NEOTIAPIM 25 MG), ONCE/SINGLE
     Route: 048
     Dates: start: 20151005, end: 20151005
  2. TRILEPTAL [Suspect]
     Active Substance: OXCARBAZEPINE
     Indication: PRODUCT USED FOR UNKNOWN INDICATION
     Dosage: (LESS THAN A BLISTER), ONCE/SINGLE
     Route: 048
     Dates: start: 20151005, end: 20151005

REACTIONS (7)
  - Loss of consciousness [Recovered/Resolved]
  - Dizziness [Recovering/Resolving]
  - Suicide attempt [Recovering/Resolving]
  - Heart rate increased [Recovered/Resolved]
  - Conversion disorder [Recovered/Resolved]
  - Somnolence [Recovered/Resolved]
  - CSF test abnormal [Unknown]

NARRATIVE: CASE EVENT DATE: 20151005
